FAERS Safety Report 4837679-6 (Version None)
Quarter: 2005Q4

REPORT INFORMATION
  Report Type: 
  Country: None (occurrence: None)
  Receive Date: 20051128
  Receipt Date: 20051004
  Transmission Date: 20060501
  Serious: Yes (Hospitalization, Other)
  Sender: FDA-Public Use
  Company Number: US-MERCK-0510USA02287

PATIENT
  Age: 74 Year
  Sex: Female
  Weight: 91 kg

DRUGS (11)
  1. VIOXX [Suspect]
     Indication: ARTHRITIS
     Route: 048
     Dates: start: 20010409, end: 20041117
  2. PAXIL [Concomitant]
     Route: 065
  3. PRILOSEC [Concomitant]
     Route: 065
  4. METROLOTION [Concomitant]
     Route: 065
  5. DIFFERIN [Concomitant]
     Route: 065
  6. CIPRO [Concomitant]
     Route: 065
  7. LORATADINE [Concomitant]
     Route: 065
  8. CEFZIL [Concomitant]
     Route: 065
  9. MINITRAN [Concomitant]
     Route: 065
  10. ACEBUTOLOL [Concomitant]
     Route: 065
  11. PREMARIN [Concomitant]
     Route: 065

REACTIONS (17)
  - ABDOMINAL PAIN [None]
  - ABNORMAL DREAMS [None]
  - ATRIAL FIBRILLATION [None]
  - BRADYCARDIA [None]
  - CARDIAC DISORDER [None]
  - CORONARY ARTERY DISEASE [None]
  - GASTRITIS [None]
  - HIATUS HERNIA [None]
  - HYPERLIPIDAEMIA [None]
  - LIMB INJURY [None]
  - MITRAL VALVE PROLAPSE [None]
  - MUSCLE SPASMS [None]
  - MYOCARDIAL INFARCTION [None]
  - NERVOUSNESS [None]
  - PEPTIC ULCER [None]
  - ULCER [None]
  - URINARY TRACT DISORDER [None]
